FAERS Safety Report 23061451 (Version 1)
Quarter: 2023Q4

REPORT INFORMATION
  Report Type: Spontaneous
  Country: US (occurrence: US)
  Receive Date: 20231013
  Receipt Date: 20231013
  Transmission Date: 20240110
  Serious: No
  Sender: FDA-Public Use
  Company Number: US-AMGEN-USASP2023180380

PATIENT
  Age: 77 Year
  Sex: Female

DRUGS (2)
  1. TAVNEOS [Suspect]
     Active Substance: AVACOPAN
     Indication: Haematuria
     Dosage: UNK
     Route: 065
     Dates: start: 2023, end: 2023
  2. TAVNEOS [Suspect]
     Active Substance: AVACOPAN
     Indication: Off label use

REACTIONS (1)
  - Off label use [Unknown]

NARRATIVE: CASE EVENT DATE: 20230101
